FAERS Safety Report 7623495-9 (Version None)
Quarter: 2011Q3

REPORT INFORMATION
  Report Type: 
  Country: None (occurrence: None)
  Receive Date: 20110720
  Receipt Date: 20110626
  Transmission Date: 20111222
  Serious: No
  Sender: FDA-Public Use
  Company Number: US-B.I. PHARMACEUTICALS,INC./RIDGEFIELD-2011-BP-16379BP

PATIENT
  Age: 57 Year
  Sex: Male

DRUGS (5)
  1. XANAX [Concomitant]
     Indication: DEPRESSION
  2. ZANTAC 150 [Suspect]
     Indication: DYSPEPSIA
     Dosage: 150 MG
     Route: 048
     Dates: start: 20110625, end: 20110626
  3. XANAX [Concomitant]
     Indication: POST-TRAUMATIC STRESS DISORDER
  4. CITALOPRAM HYDROBROMIDE [Concomitant]
     Indication: DEPRESSION
  5. CITALOPRAM HYDROBROMIDE [Concomitant]
     Indication: POST-TRAUMATIC STRESS DISORDER

REACTIONS (1)
  - DEPRESSED LEVEL OF CONSCIOUSNESS [None]
